FAERS Safety Report 4536194-7 (Version None)
Quarter: 2004Q4

REPORT INFORMATION
  Report Type: 
  Country: None (occurrence: None)
  Receive Date: 20041223
  Receipt Date: 20001204
  Transmission Date: 20050328
  Serious: Yes (Hospitalization)
  Sender: FDA-Public Use
  Company Number: FR-GLAXOSMITHKLINE-B0243051A

PATIENT
  Age: 89 Year
  Sex: Female
  Weight: 63 kg

DRUGS (7)
  1. DEROXAT [Suspect]
     Dosage: 10MG PER DAY
     Route: 048
     Dates: start: 20001011, end: 20001016
  2. MODOPAR [Concomitant]
     Indication: PARKINSON'S DISEASE
     Dosage: 500MG PER DAY
     Route: 048
  3. MOTILIUM [Concomitant]
     Dosage: 3TSP PER DAY
     Route: 048
  4. REQUIP [Concomitant]
     Indication: PARKINSON'S DISEASE
     Dosage: 1MG PER DAY
     Route: 048
  5. TIMOPTIC [Concomitant]
     Indication: GLAUCOMA
     Dosage: 4UNIT PER DAY
     Route: 047
  6. PILOCARPINE [Concomitant]
     Indication: GLAUCOMA
     Dosage: 4UNIT PER DAY
     Route: 047
  7. MOVICOL [Concomitant]
     Route: 048

REACTIONS (4)
  - CONFUSIONAL STATE [None]
  - DEPRESSED LEVEL OF CONSCIOUSNESS [None]
  - HYPONATRAEMIA [None]
  - SOMNOLENCE [None]
